FAERS Safety Report 4322447-4 (Version None)
Quarter: 2004Q1

REPORT INFORMATION
  Report Type: 
  Country: None (occurrence: None)
  Receive Date: 20040319
  Receipt Date: 20040308
  Transmission Date: 20041129
  Serious: Yes (Other)
  Sender: FDA-Public Use
  Company Number: 2004-DE-01095GD (0)

PATIENT
  Age: 40 Year
  Sex: Male

DRUGS (2)
  1. AZATHIOPRINE [Suspect]
     Indication: RETROPERITONEAL FIBROSIS
     Dosage: 2.5 MG/KG/DAY FOR 6 MONTHS, THEN REDUCED TO 1.5 MG/KG AND MAINTAINED FOR ANOTHER 6 MONTHS (NR),
  2. PREDNISONE [Suspect]
     Indication: RETROPERITONEAL FIBROSIS
     Dosage: 1 - 1.5 MG/KG/DAY FOR 3 WEEKS, THEN TAPERED UNTIL DISCONTINUATION WITHIN 6 MONTHS (NR), PO
     Route: 048

REACTIONS (1)
  - HEPATITIS B [None]
